FAERS Safety Report 4482205-7 (Version None)
Quarter: 2004Q4

REPORT INFORMATION
  Report Type: 
  Country: None (occurrence: None)
  Receive Date: 20041012
  Receipt Date: 20041012
  Transmission Date: 20050328
  Serious: Yes (Other)
  Sender: FDA-Public Use
  Company Number: 200414922BCC

PATIENT
  Age: 46 Year
  Sex: Female
  Weight: 63.5036 kg

DRUGS (4)
  1. NEO-SYNEPHRINE [Suspect]
     Indication: SINUS HEADACHE
     Dosage: ONCE, NASAL
     Route: 045
     Dates: start: 20041008
  2. KEPPRA [Concomitant]
  3. PHENOBARBITAL TAB [Concomitant]
  4. MELATONIN [Concomitant]

REACTIONS (4)
  - BITE [None]
  - CONVULSION [None]
  - HYPERSOMNIA [None]
  - LIP DISORDER [None]
